FAERS Safety Report 7210692-X (Version None)
Quarter: 2011Q1

REPORT INFORMATION
  Report Type: 
  Country: None (occurrence: None)
  Receive Date: 20110105
  Receipt Date: 20101231
  Transmission Date: 20110831
  Serious: No
  Sender: FDA-Public Use
  Company Number: US-PFIZER INC-2011000026

PATIENT
  Sex: Female

DRUGS (3)
  1. NEURONTIN [Suspect]
     Indication: MUSCLE SPASMS
     Dosage: 300 MG, 3X/DAY
     Route: 048
     Dates: start: 20070101
  2. PERCOCET [Concomitant]
     Indication: PAIN
     Dosage: 5 MG, 4X/DAY
     Route: 048
  3. ACETAMINOPHEN [Concomitant]
     Indication: PAIN
     Dosage: 325 MG, UNK

REACTIONS (2)
  - SALIVARY HYPERSECRETION [None]
  - DRY MOUTH [None]
